FAERS Safety Report 19886520 (Version 1)
Quarter: 2021Q3

REPORT INFORMATION
  Report Type: Report from Study
  Country: US (occurrence: US)
  Receive Date: 20210927
  Receipt Date: 20210927
  Transmission Date: 20211014
  Serious: Yes (Hospitalization)
  Sender: FDA-Public Use
  Company Number: US-BAYER-2021-213387

PATIENT
  Sex: Female
  Weight: 106.9 kg

DRUGS (6)
  1. COPANLISIB. [Suspect]
     Active Substance: COPANLISIB
     Indication: METASTASIS
  2. ABEMACICLIB [Suspect]
     Active Substance: ABEMACICLIB
     Indication: METASTASIS
  3. COPANLISIB. [Suspect]
     Active Substance: COPANLISIB
     Indication: HER2 NEGATIVE BREAST CANCER
     Dosage: 45 MG, DAYS 1, 8 AND 15 (135MG TOTAL DOSE ADMINISTERED ON COURSE)
     Dates: start: 20210128, end: 20210218
  4. ABEMACICLIB [Suspect]
     Active Substance: ABEMACICLIB
     Indication: HER2 NEGATIVE BREAST CANCER
     Dosage: 100 MG, 5400 MG (TOTAL DOSE ADMINISTERED ON COURSE)
     Dates: start: 20210128, end: 20210224
  5. FASLODEX [Suspect]
     Active Substance: FULVESTRANT
     Indication: HER2 NEGATIVE BREAST CANCER
     Dosage: 1000MG (TOTAL DOSE ADMINISTERED ON COURSE)
     Dates: start: 20210128, end: 20210211
  6. FASLODEX [Suspect]
     Active Substance: FULVESTRANT
     Indication: METASTASIS

REACTIONS (1)
  - Syncope [Recovered/Resolved with Sequelae]

NARRATIVE: CASE EVENT DATE: 20210304
